FAERS Safety Report 8150453-0 (Version None)
Quarter: 2012Q1

REPORT INFORMATION
  Report Type: 
  Country: None (occurrence: None)
  Receive Date: 20120220
  Receipt Date: 20120214
  Transmission Date: 20120608
  Serious: Yes (Other)
  Sender: FDA-Public Use
  Company Number: US-AMGEN-USASP2011021095

PATIENT
  Age: 54 Year
  Sex: Female
  Weight: 116.5 kg

DRUGS (11)
  1. VITAMIN D [Concomitant]
  2. PROLIA [Suspect]
     Indication: OSTEOPOROSIS POSTMENOPAUSAL
     Dosage: 60 MG, UNK
     Route: 058
     Dates: start: 20110415, end: 20110416
  3. ZYRTEC [Concomitant]
  4. ESTRADIOL [Concomitant]
  5. LASIX [Concomitant]
  6. CELEXA [Concomitant]
  7. POTASSIUM CHLORIDE [Concomitant]
  8. PLAQUENIL [Concomitant]
  9. MECLIZINE [Concomitant]
  10. FLEXERIL [Concomitant]
  11. NEXIUM [Concomitant]

REACTIONS (5)
  - DERMATITIS ALLERGIC [None]
  - INJECTION SITE ERYTHEMA [None]
  - HYPERSENSITIVITY [None]
  - SKIN EXFOLIATION [None]
  - INJECTION SITE DERMATITIS [None]
